FAERS Safety Report 16590732 (Version 1)
Quarter: 2019Q3

REPORT INFORMATION
  Report Type: Spontaneous
  Country: US (occurrence: US)
  Receive Date: 20190604
  Receipt Date: 20190604
  Transmission Date: 20191004
  Serious: Yes (Disabling, Other)
  Sender: FDA-Public Use
  Company Number: None

PATIENT
  Age: 71 Year
  Sex: Female
  Weight: 106.14 kg

DRUGS (20)
  1. FERROUS SULFATE. [Concomitant]
     Active Substance: FERROUS SULFATE
  2. FUROSEMIDE. [Concomitant]
     Active Substance: FUROSEMIDE
  3. FLUTICASONE. [Concomitant]
     Active Substance: FLUTICASONE
  4. ALLOPURINOL. [Concomitant]
     Active Substance: ALLOPURINOL
  5. INSULIN SYRINGE-NEEDLE [Concomitant]
  6. SPIRIVA WITH HANDIHALER [Concomitant]
  7. TRUE METRIX GLUCOSE TEST STRIP [Concomitant]
  8. ADVAIR DISKUS [Concomitant]
     Active Substance: FLUTICASONE PROPIONATE\SALMETEROL XINAFOATE
  9. LISINOPRIL. [Concomitant]
     Active Substance: LISINOPRIL
  10. ATORVASTATIN [Concomitant]
     Active Substance: ATORVASTATIN
  11. DILTIAZEM ER [Concomitant]
     Active Substance: DILTIAZEM
  12. FLUTICASONE. [Concomitant]
     Active Substance: FLUTICASONE
  13. ELIQUIS [Concomitant]
     Active Substance: APIXABAN
  14. NITROGLYCERN [Concomitant]
  15. NOVOLOG [Concomitant]
     Active Substance: INSULIN ASPART
  16. VENTOLIN HFA [Concomitant]
     Active Substance: ALBUTEROL SULFATE
  17. DILTIAZEM 24 H ER (CD) [Suspect]
     Active Substance: DILTIAZEM
     Indication: ATRIAL FIBRILLATION
     Dosage: ?          QUANTITY:300 MG MILLIGRAM(S);?
     Route: 048
     Dates: start: 20190404
  18. LANTUS [Concomitant]
     Active Substance: INSULIN GLARGINE
  19. MAGNESIUM OXIDE. [Concomitant]
     Active Substance: MAGNESIUM OXIDE
  20. PANTOPRAZOLE [Concomitant]
     Active Substance: PANTOPRAZOLE

REACTIONS (10)
  - Pruritus [None]
  - Paranoia [None]
  - Hallucination [None]
  - Depression [None]
  - Decreased appetite [None]
  - Peripheral swelling [None]
  - Dizziness [None]
  - Abnormal dreams [None]
  - Mental disorder [None]
  - Sleep deficit [None]

NARRATIVE: CASE EVENT DATE: 20190416
